FAERS Safety Report 10562801 (Version 5)
Quarter: 2020Q4

REPORT INFORMATION
  Report Type: Spontaneous
  Country: JP (occurrence: JP)
  Receive Date: 20141104
  Receipt Date: 20201215
  Transmission Date: 20210113
  Serious: Yes (Hospitalization)
  Sender: FDA-Public Use
  Company Number: JP-TEVA-519782ISR

PATIENT
  Sex: Male
  Weight: 2.5 kg

DRUGS (7)
  1. ISOMYTAL [Suspect]
     Active Substance: AMOBARBITAL SODIUM
     Dosage: .04 MILLIGRAM DAILY;
     Route: 064
  2. FENTANYL CITRATE. [Concomitant]
     Active Substance: FENTANYL CITRATE
     Route: 064
  3. MODIODAL TABLETS 100MG [Suspect]
     Active Substance: MODAFINIL
     Indication: NARCOLEPSY
     Dosage: 300 MILLIGRAM DAILY;
     Route: 064
  4. ANAFRANIL [Suspect]
     Active Substance: CLOMIPRAMINE HYDROCHLORIDE
     Indication: NARCOLEPSY
     Dosage: 125 MILLIGRAM DAILY;
     Route: 064
  5. RIVOTRIL [Suspect]
     Active Substance: CLONAZEPAM
     Dosage: 4 MILLIGRAM DAILY;
     Route: 064
  6. NELUROLEN TABLETS 5MG [Suspect]
     Active Substance: NITRAZEPAM
     Dosage: 1.5 MILLIGRAM DAILY;
     Route: 064
  7. BUPIVACAINE HYDROCHLORIDE HYDRATE [Concomitant]
     Active Substance: BUPIVACAINE HYDROCHLORIDE
     Route: 064

REACTIONS (2)
  - Neonatal behavioural syndrome [Recovering/Resolving]
  - Foetal exposure during pregnancy [Unknown]

NARRATIVE: CASE EVENT DATE: 201309
